FAERS Safety Report 4815559-X (Version None)
Quarter: 2005Q4

REPORT INFORMATION
  Report Type: 
  Country: None (occurrence: None)
  Receive Date: 20051028
  Receipt Date: 20051028
  Transmission Date: 20060501
  Serious: Yes (Death, Hospitalization)
  Sender: FDA-Public Use
  Company Number: None

PATIENT
  Sex: Female
  Weight: 64.5 kg

DRUGS (6)
  1. OXALIPLATIN [Suspect]
     Indication: COLON CANCER
     Dosage: SEE IMAGE
     Route: 042
     Dates: start: 20050921, end: 20050921
  2. LEUCOVORIN [Suspect]
     Dosage: SEE IMAGE
     Route: 042
     Dates: start: 20050921, end: 20050921
  3. FLUOROURACIL [Suspect]
     Dosage: SEE IMAGE
     Route: 042
     Dates: start: 20050921, end: 20050921
  4. FLUOROURACIL [Suspect]
     Dosage: SEE IMAGE
     Route: 042
     Dates: start: 20050921, end: 20050921
  5. COUMADIN [Concomitant]
  6. NEULASTA [Concomitant]

REACTIONS (22)
  - ABDOMINAL PAIN UPPER [None]
  - ABDOMINAL TENDERNESS [None]
  - CARDIAC ARREST [None]
  - CEREBRAL INFARCTION [None]
  - CEREBRAL ISCHAEMIA [None]
  - DISORIENTATION [None]
  - HYPOAESTHESIA [None]
  - HYPOTENSION [None]
  - INTRA-ABDOMINAL HAEMORRHAGE [None]
  - ISCHAEMIA [None]
  - PAIN IN EXTREMITY [None]
  - PERIPHERAL COLDNESS [None]
  - PETIT MAL EPILEPSY [None]
  - PNEUMONIA ASPIRATION [None]
  - PULSE ABSENT [None]
  - PUPILLARY REFLEX IMPAIRED [None]
  - RENAL FAILURE ACUTE [None]
  - SEPSIS [None]
  - SPLENIC RUPTURE [None]
  - UNRESPONSIVE TO PAIN STIMULI [None]
  - VENTRICULAR FIBRILLATION [None]
  - WHITE BLOOD CELL COUNT INCREASED [None]
